FAERS Safety Report 8777447 (Version 2)
Quarter: 2012Q4

REPORT INFORMATION
  Report Type: 
  Country: US (occurrence: US)
  Receive Date: 20120911
  Receipt Date: 20120924
  Transmission Date: 20130627
  Serious: Yes (Hospitalization)
  Sender: FDA-Public Use
  Company Number: US-B.I. PHARMACEUTICALS,INC./RIDGEFIELD-2012-BP-22160BP

PATIENT
  Sex: Female
  Weight: 59 kg

DRUGS (10)
  1. SPIRIVA [Suspect]
     Indication: CHRONIC OBSTRUCTIVE PULMONARY DISEASE
     Dosage: 18 mcg
     Route: 055
     Dates: start: 2008, end: 2011
  2. SPIRIVA [Suspect]
     Dosage: 18 mcg
     Route: 055
     Dates: start: 2011
  3. ALBUTEROL [Concomitant]
     Indication: RESPIRATORY DISTRESS
     Route: 055
     Dates: start: 2008
  4. FLONASE [Concomitant]
     Indication: NASAL CONGESTION
     Route: 045
     Dates: start: 2008
  5. ECOTRIN [Concomitant]
     Indication: CARDIAC DISORDER
     Dosage: 325 mg
     Route: 048
  6. POTASSIUM [Concomitant]
     Route: 048
  7. ADVAIR [Concomitant]
     Indication: CHRONIC OBSTRUCTIVE PULMONARY DISEASE
     Dates: start: 2008
  8. CALCIUM [Concomitant]
     Dosage: 1200 mg
     Route: 048
  9. ATENOLOL [Concomitant]
     Indication: HYPERTENSION
     Dosage: 25 mg
     Route: 048
     Dates: start: 2000
  10. FISH OIL [Concomitant]
     Dosage: 1000 mg
     Route: 048

REACTIONS (5)
  - Lung neoplasm malignant [Unknown]
  - Fatigue [Recovered/Resolved]
  - Dyspnoea exertional [Recovered/Resolved]
  - Dyspnoea [Recovered/Resolved]
  - Product quality issue [Unknown]
